FAERS Safety Report 7711013-6 (Version None)
Quarter: 2011Q3

REPORT INFORMATION
  Report Type: 
  Country: None (occurrence: None)
  Receive Date: 20110825
  Receipt Date: 20110812
  Transmission Date: 20111222
  Serious: Yes (Other)
  Sender: FDA-Public Use
  Company Number: GB-MYLANLABS-2011S1016893

PATIENT
  Age: 43 Year
  Sex: Female
  Weight: 149 kg

DRUGS (5)
  1. DULOXETIME HYDROCHLORIDE [Suspect]
     Indication: DEPRESSION
     Dates: start: 20080828
  2. LANSOPRAZOLE [Suspect]
     Indication: PRODUCT USED FOR UNKNOWN INDICATION
     Dates: start: 20070606
  3. TEMAZEPAM [Suspect]
     Indication: PRODUCT USED FOR UNKNOWN INDICATION
     Dates: start: 20080828
  4. QUETIAPINE [Suspect]
     Indication: PRODUCT USED FOR UNKNOWN INDICATION
     Dates: start: 20080828
  5. DULOXETIME HYDROCHLORIDE [Suspect]
     Indication: HALLUCINATION, AUDITORY
     Dates: start: 20080828

REACTIONS (1)
  - OPTIC NEURITIS [None]
